FAERS Safety Report 25651512 (Version 1)
Quarter: 2025Q3

REPORT INFORMATION
  Report Type: Spontaneous
  Country: CN (occurrence: CN)
  Receive Date: 20250806
  Receipt Date: 20250806
  Transmission Date: 20251021
  Serious: Yes (Hospitalization, Other)
  Sender: MYLAN
  Company Number: CN-MYLANLABS-2025M1065878

PATIENT
  Age: 53 Year
  Sex: Male

DRUGS (8)
  1. LIPITOR [Suspect]
     Active Substance: ATORVASTATIN CALCIUM
     Indication: Cerebral infarction
     Dosage: 40 MILLIGRAM, QD
     Dates: start: 20250624, end: 20250719
  2. LIPITOR [Suspect]
     Active Substance: ATORVASTATIN CALCIUM
     Dosage: 40 MILLIGRAM, QD
     Route: 048
     Dates: start: 20250624, end: 20250719
  3. LIPITOR [Suspect]
     Active Substance: ATORVASTATIN CALCIUM
     Dosage: 40 MILLIGRAM, QD
     Route: 048
     Dates: start: 20250624, end: 20250719
  4. LIPITOR [Suspect]
     Active Substance: ATORVASTATIN CALCIUM
     Dosage: 40 MILLIGRAM, QD
     Dates: start: 20250624, end: 20250719
  5. CITICOLINE SODIUM [Suspect]
     Active Substance: CITICOLINE SODIUM
     Indication: Cerebral infarction
     Dosage: 0.5 GRAM, QD
     Dates: start: 20250624, end: 20250719
  6. CITICOLINE SODIUM [Suspect]
     Active Substance: CITICOLINE SODIUM
     Dosage: 0.5 GRAM, QD
     Route: 042
     Dates: start: 20250624, end: 20250719
  7. CITICOLINE SODIUM [Suspect]
     Active Substance: CITICOLINE SODIUM
     Dosage: 0.5 GRAM, QD
     Route: 042
     Dates: start: 20250624, end: 20250719
  8. CITICOLINE SODIUM [Suspect]
     Active Substance: CITICOLINE SODIUM
     Dosage: 0.5 GRAM, QD
     Dates: start: 20250624, end: 20250719

REACTIONS (4)
  - Chills [Recovering/Resolving]
  - Pruritus [Recovering/Resolving]
  - Liver function test abnormal [Recovering/Resolving]
  - Arthralgia [Recovering/Resolving]

NARRATIVE: CASE EVENT DATE: 20250719
